FAERS Safety Report 11087873 (Version 1)
Quarter: 2015Q2

REPORT INFORMATION
  Report Type: Spontaneous
  Country: US (occurrence: None)
  Receive Date: 20150501
  Receipt Date: 20150501
  Transmission Date: 20150821
  Serious: Yes (Hospitalization)
  Sender: FDA-Public Use
  Company Number: None

PATIENT
  Age: 53 Year
  Sex: Female
  Weight: 66 kg

DRUGS (3)
  1. METFORMIN HYDROCHLORIDE. [Suspect]
     Active Substance: METFORMIN HYDROCHLORIDE
     Dates: end: 20150430
  2. CARBOPLATIN. [Suspect]
     Active Substance: CARBOPLATIN
     Dates: end: 20150417
  3. TAXOL [Suspect]
     Active Substance: PACLITAXEL
     Dates: end: 20150417

REACTIONS (7)
  - Cough [None]
  - Malnutrition [None]
  - Pain [None]
  - Hypophagia [None]
  - Metastases to lung [None]
  - Hypercalcaemia [None]
  - Dyspnoea [None]

NARRATIVE: CASE EVENT DATE: 20150409
